FAERS Safety Report 6248794-7 (Version None)
Quarter: 2009Q2

REPORT INFORMATION
  Report Type: 
  Country: None (occurrence: None)
  Receive Date: 20090629
  Receipt Date: 20090626
  Transmission Date: 20091009
  Serious: Yes (Life-Threatening, Hospitalization)
  Sender: FDA-Public Use
  Company Number: GB-ROCHE-638686

PATIENT
  Sex: Male

DRUGS (1)
  1. CELLCEPT [Suspect]
     Indication: ECZEMA
     Route: 048
     Dates: start: 20090331

REACTIONS (4)
  - ABSCESS [None]
  - MUSCULAR WEAKNESS [None]
  - SEPSIS [None]
  - STAPHYLOCOCCAL INFECTION [None]
